FAERS Safety Report 17202464 (Version 3)
Quarter: 2020Q1

REPORT INFORMATION
  Report Type: Report from Study
  Country: None (occurrence: US)
  Receive Date: 20191226
  Receipt Date: 20200318
  Transmission Date: 20200409
  Serious: No
  Sender: FDA-Public Use
  Company Number: US-ABBVIE-19K-163-3011466-00

PATIENT
  Age: 50 Year
  Sex: Female

DRUGS (3)
  1. TRAZODONE [Concomitant]
     Active Substance: TRAZODONE HYDROCHLORIDE
     Indication: SLEEP DISORDER
  2. LUNESTA [Concomitant]
     Active Substance: ESZOPICLONE
     Indication: SLEEP DISORDER
  3. HUMIRA [Suspect]
     Active Substance: ADALIMUMAB
     Indication: COLITIS ULCERATIVE
     Dosage: CITRATE FREE
     Route: 058
     Dates: start: 20190918

REACTIONS (12)
  - Hypoaesthesia oral [Unknown]
  - Fatigue [Recovering/Resolving]
  - Paraesthesia [Unknown]
  - Pain [Recovering/Resolving]
  - Hypoaesthesia [Unknown]
  - Abnormal faeces [Not Recovered/Not Resolved]
  - Headache [Recovering/Resolving]
  - Visual impairment [Unknown]
  - Mobility decreased [Unknown]
  - Aphasia [Unknown]
  - Muscular weakness [Recovering/Resolving]
  - Musculoskeletal discomfort [Unknown]

NARRATIVE: CASE EVENT DATE: 2019
